FAERS Safety Report 6971917-9 (Version None)
Quarter: 2010Q3

REPORT INFORMATION
  Report Type: 
  Country: None (occurrence: None)
  Receive Date: 20100908
  Receipt Date: 20100908
  Transmission Date: 20110219
  Serious: No
  Sender: FDA-Public Use
  Company Number: None

PATIENT
  Sex: Male
  Weight: 97.5234 kg

DRUGS (1)
  1. LEVAQUIN [Suspect]
     Indication: MICTURITION DISORDER
     Dosage: 1 TABLET ONCE DAILY PO
     Route: 048
     Dates: start: 20091128, end: 20091204

REACTIONS (12)
  - ARTHRALGIA [None]
  - BALANCE DISORDER [None]
  - COORDINATION ABNORMAL [None]
  - ECONOMIC PROBLEM [None]
  - GAIT DISTURBANCE [None]
  - IMPAIRED WORK ABILITY [None]
  - MEMORY IMPAIRMENT [None]
  - OEDEMA PERIPHERAL [None]
  - PAIN [None]
  - PAIN IN EXTREMITY [None]
  - TENDONITIS [None]
  - VISUAL IMPAIRMENT [None]
